FAERS Safety Report 13754023 (Version 2)
Quarter: 2017Q3

REPORT INFORMATION
  Report Type: Spontaneous
  Country: US (occurrence: US)
  Receive Date: 20170714
  Receipt Date: 20170822
  Transmission Date: 20171127
  Serious: No
  Sender: FDA-Public Use
  Company Number: PHEH2017US021520

PATIENT
  Sex: Female
  Weight: 145.13 kg

DRUGS (1)
  1. FAMVIR [Suspect]
     Active Substance: FAMCICLOVIR
     Indication: HERPES ZOSTER
     Dosage: UNK
     Route: 065
     Dates: start: 20170604

REACTIONS (1)
  - Maternal exposure during pregnancy [Unknown]
